FAERS Safety Report 5499985-4 (Version None)
Quarter: 2007Q4

REPORT INFORMATION
  Report Type: 
  Country: None (occurrence: None)
  Receive Date: 20071026
  Receipt Date: 20071018
  Transmission Date: 20080405
  Serious: Yes (Hospitalization, Other)
  Sender: FDA-Public Use
  Company Number: US-ABBOTT-07P-163-0421285-00

PATIENT
  Age: 50 Year
  Sex: Female

DRUGS (1)
  1. HUMIRA [Suspect]
     Indication: CROHN'S DISEASE
     Route: 058
     Dates: start: 20070901, end: 20070901

REACTIONS (4)
  - KIDNEY INFECTION [None]
  - SEPSIS [None]
  - URINARY TRACT INFECTION [None]
  - VAGINAL DISCHARGE [None]
